FAERS Safety Report 7351405-0 (Version None)
Quarter: 2011Q1

REPORT INFORMATION
  Report Type: 
  Country: None (occurrence: None)
  Receive Date: 20110314
  Receipt Date: 20110307
  Transmission Date: 20110831
  Serious: Yes (Other)
  Sender: FDA-Public Use
  Company Number: US-US-EMD SERONO, INC.-7046681

PATIENT
  Sex: Female
  Weight: 70 kg

DRUGS (2)
  1. REBIF [Suspect]
     Indication: MULTIPLE SCLEROSIS
     Dates: start: 20081202, end: 20100525
  2. REBIF [Suspect]
     Dates: start: 20100625, end: 20110115

REACTIONS (3)
  - BLOOD COUNT ABNORMAL [None]
  - ABORTION SPONTANEOUS [None]
  - DRUG EXPOSURE DURING PREGNANCY [None]
